FAERS Safety Report 4865609-X (Version None)
Quarter: 2005Q4

REPORT INFORMATION
  Report Type: 
  Country: None (occurrence: None)
  Receive Date: 20051220
  Receipt Date: 20051212
  Transmission Date: 20060501
  Serious: Yes (Disabling, Other)
  Sender: FDA-Public Use
  Company Number: 2005167919

PATIENT
  Sex: Male

DRUGS (8)
  1. NEURONTIN [Suspect]
     Indication: ILL-DEFINED DISORDER
  2. ZOLOFT [Suspect]
     Indication: ILL-DEFINED DISORDER
  3. METHADONE HCL [Suspect]
     Indication: ILL-DEFINED DISORDER
  4. VALIUM [Suspect]
     Indication: ILL-DEFINED DISORDER
  5. ZANAFLEX [Suspect]
     Indication: ILL-DEFINED DISORDER
  6. TOPAMAX [Suspect]
     Indication: ILL-DEFINED DISORDER
  7. ELAVIL [Concomitant]
  8. WELLBUTRIN [Concomitant]

REACTIONS (2)
  - IMPAIRED WORK ABILITY [None]
  - PAIN [None]
